FAERS Safety Report 25352993 (Version 1)
Quarter: 2025Q2

REPORT INFORMATION
  Report Type: Spontaneous
  Country: MA (occurrence: MA)
  Receive Date: 20250523
  Receipt Date: 20250523
  Transmission Date: 20250717
  Serious: Yes (Death, Hospitalization, Other)
  Sender: PFIZER
  Company Number: MA-PFIZER INC-PV202500059107

PATIENT
  Age: 11 Month
  Sex: Male

DRUGS (5)
  1. TIGECYCLINE [Suspect]
     Active Substance: TIGECYCLINE
     Indication: Bacteraemia
  2. COLISTIN [Suspect]
     Active Substance: COLISTIN
     Indication: Bacteraemia
  3. IMIPENEM [Suspect]
     Active Substance: IMIPENEM
     Indication: Bacteraemia
     Dosage: 20 MG/KG, 3X/DAY (EVERY EIGHT HOURS)
  4. AMIKACIN [Suspect]
     Active Substance: AMIKACIN
     Indication: Bacteraemia
     Dosage: 15 MG/KG, DAILY
  5. VANCOMYCIN [Suspect]
     Active Substance: VANCOMYCIN
     Indication: Bacteraemia

REACTIONS (3)
  - Drug ineffective for unapproved indication [Fatal]
  - Off label use [Unknown]
  - Off label use [Unknown]
